FAERS Safety Report 15700702 (Version 2)
Quarter: 2019Q4

REPORT INFORMATION
  Report Type: Spontaneous
  Country: US (occurrence: US)
  Receive Date: 20181207
  Receipt Date: 20191028
  Transmission Date: 20200122
  Serious: No
  Sender: FDA-Public Use
  Company Number: US-SA-2018SA332328

PATIENT
  Age: 75 Year
  Sex: Male

DRUGS (1)
  1. ALIROCUMAB [Suspect]
     Active Substance: ALIROCUMAB
     Indication: HYPERLIPIDAEMIA
     Dosage: 75 MG, QOW
     Route: 058
     Dates: start: 20170130

REACTIONS (5)
  - Pruritus [Unknown]
  - Myalgia [Unknown]
  - Erectile dysfunction [Unknown]
  - Myalgia [Unknown]
  - Erythema [Unknown]

NARRATIVE: CASE EVENT DATE: 201906
